FAERS Safety Report 15376336 (Version 1)
Quarter: 2018Q3

REPORT INFORMATION
  Report Type: Spontaneous
  Country: DE (occurrence: DE)
  Receive Date: 20180912
  Receipt Date: 20180912
  Transmission Date: 20181010
  Serious: Yes (Hospitalization)
  Sender: FDA-Public Use
  Company Number: DE-SA-2018SA240178

PATIENT
  Age: 40 Year
  Sex: Female

DRUGS (4)
  1. BUPRENORPHINE TABLET [Suspect]
     Active Substance: BUPRENORPHINE
     Indication: ANTIDEPRESSANT THERAPY
     Dosage: 0.2 MG, UNK
     Route: 060
  2. TRIMIPRAMINE [Suspect]
     Active Substance: TRIMIPRAMINE
     Indication: MAJOR DEPRESSION
     Dosage: 200 MG, QD
     Route: 065
  3. TRANYLCYPROMINE [Suspect]
     Active Substance: TRANYLCYPROMINE
     Indication: MAJOR DEPRESSION
     Dosage: 20 MG, QD
     Route: 065
  4. LITHIUM. [Concomitant]
     Active Substance: LITHIUM
     Indication: PRODUCT USED FOR UNKNOWN INDICATION
     Dosage: UNK
     Route: 065

REACTIONS (6)
  - Off label use [Unknown]
  - Depression [Recovered/Resolved]
  - Insomnia [Unknown]
  - Depressed mood [Recovered/Resolved]
  - Anxiety [Recovered/Resolved]
  - Apathy [Recovered/Resolved]
